FAERS Safety Report 5692807-8 (Version None)
Quarter: 2008Q2

REPORT INFORMATION
  Report Type: 
  Country: None (occurrence: None)
  Receive Date: 20080401
  Receipt Date: 20080207
  Transmission Date: 20081010
  Serious: Yes (Disabling)
  Sender: FDA-Public Use
  Company Number: 2008AL001718

PATIENT
  Sex: Female

DRUGS (5)
  1. GABAPENTIN [Suspect]
     Indication: NEURALGIA
     Dosage: 300 MG; TID; PO
     Route: 048
     Dates: start: 20071205, end: 20080103
  2. DIGOXIN [Suspect]
     Indication: ATRIAL FIBRILLATION
     Dosage: 0.125 MG; PO
     Route: 048
  3. WARFARIN SODIUM [Concomitant]
  4. ENALAPRIL MALEATE [Concomitant]
  5. FERROUS SULFATE TAB [Concomitant]

REACTIONS (2)
  - COAGULATION TIME PROLONGED [None]
  - SUBDURAL HAEMATOMA [None]
